FAERS Safety Report 6416992-5 (Version None)
Quarter: 2009Q4

REPORT INFORMATION
  Report Type: 
  Country: None (occurrence: None)
  Receive Date: 20091027
  Receipt Date: 20090727
  Transmission Date: 20100525
  Serious: No
  Sender: FDA-Public Use
  Company Number: US-ALLERGAN-0910512US

PATIENT
  Age: 89 Year
  Sex: Female

DRUGS (3)
  1. ACULAR LS [Suspect]
     Indication: DRUG USE FOR UNKNOWN INDICATION
  2. ALPHAGAN P [Suspect]
     Indication: DRUG USE FOR UNKNOWN INDICATION
  3. TRAVATAN Z [Suspect]
     Indication: GLAUCOMA
     Dosage: 1 GTT, QHS
     Route: 047
     Dates: start: 20090201

REACTIONS (2)
  - EYE IRRITATION [None]
  - OCULAR HYPERAEMIA [None]
